FAERS Safety Report 9759613 (Version 2)
Quarter: 2013Q4

REPORT INFORMATION
  Report Type: Spontaneous
  Country: US (occurrence: US)
  Receive Date: 20131216
  Receipt Date: 20131216
  Transmission Date: 20140711
  Serious: No
  Sender: FDA-Public Use
  Company Number: US-GILEAD-2010-0028041

PATIENT
  Sex: Female
  Weight: 16.33 kg

DRUGS (3)
  1. LETAIRIS [Suspect]
     Indication: PULMONARY ARTERIAL HYPERTENSION
     Route: 048
     Dates: start: 20100301
  2. REVATIO [Concomitant]
  3. WARFARIN [Concomitant]

REACTIONS (2)
  - Faeces discoloured [Unknown]
  - Abdominal pain upper [Unknown]
